FAERS Safety Report 17894103 (Version 1)
Quarter: 2020Q2

REPORT INFORMATION
  Report Type: Spontaneous
  Country: US (occurrence: US)
  Receive Date: 20200615
  Receipt Date: 20200615
  Transmission Date: 20200714
  Serious: No
  Sender: FDA-Public Use
  Company Number: US-009507513-2006USA004910

PATIENT
  Age: 37 Year
  Sex: Female
  Weight: 89.3 kg

DRUGS (1)
  1. NEXPLANON [Suspect]
     Active Substance: ETONOGESTREL
     Dosage: 1 DOSAGE FORM
     Route: 059
     Dates: start: 2010

REACTIONS (2)
  - Incorrect product administration duration [Unknown]
  - Complication associated with device [Unknown]

NARRATIVE: CASE EVENT DATE: 2013
